FAERS Safety Report 4860456-7 (Version None)
Quarter: 2005Q4

REPORT INFORMATION
  Report Type: 
  Country: None (occurrence: None)
  Receive Date: 20051219
  Receipt Date: 20051208
  Transmission Date: 20060501
  Serious: Yes (Hospitalization)
  Sender: FDA-Public Use
  Company Number: CH-BRISTOL-MYERS SQUIBB COMPANY-13209598

PATIENT
  Age: 82 Year
  Sex: Female

DRUGS (10)
  1. COAPROVEL FORTE TABS 300 MG/12.5 MG [Suspect]
     Route: 048
     Dates: end: 20050919
  2. PRADIF [Interacting]
     Route: 048
     Dates: start: 20050919, end: 20050919
  3. CALCIMAGON [Concomitant]
     Route: 048
  4. DEROXAT [Concomitant]
     Route: 048
  5. FEMARA [Concomitant]
     Route: 048
  6. FOSAMAX [Concomitant]
     Route: 048
  7. MADOPAR [Concomitant]
     Route: 048
  8. RYTHMOL [Concomitant]
     Route: 048
  9. SINTROM [Concomitant]
     Route: 048
  10. TRANSIPEG [Concomitant]
     Route: 048

REACTIONS (3)
  - DRUG INTERACTION [None]
  - MEDICATION ERROR [None]
  - SYNCOPE [None]
